FAERS Safety Report 6615242-4 (Version None)
Quarter: 2010Q1

REPORT INFORMATION
  Report Type: 
  Country: None (occurrence: None)
  Receive Date: 20100226
  Receipt Date: 20091230
  Transmission Date: 20100710
  Serious: Yes (Disabling)
  Sender: FDA-Public Use
  Company Number: 007366

PATIENT
  Age: 21 Year
  Sex: Female

DRUGS (1)
  1. KEPPRA [Suspect]
     Indication: EPILEPSY
     Dosage: (SAID TO BE A LOW DOSE ORAL)
     Route: 048
     Dates: start: 20090101, end: 20090101

REACTIONS (2)
  - DEPERSONALISATION [None]
  - PANIC ATTACK [None]
